FAERS Safety Report 25998783 (Version 1)
Quarter: 2025Q4

REPORT INFORMATION
  Report Type: Spontaneous
  Country: GB (occurrence: GB)
  Receive Date: 20251105
  Receipt Date: 20251105
  Transmission Date: 20260118
  Serious: Yes (Other)
  Sender: ALKEM
  Company Number: None

PATIENT
  Age: 32 Year

DRUGS (2)
  1. FINASTERIDE [Suspect]
     Active Substance: FINASTERIDE
     Indication: Product used for unknown indication
     Dosage: UNK
     Route: 061
  2. MINOXIDIL [Suspect]
     Active Substance: MINOXIDIL
     Indication: Hair growth abnormal
     Dosage: UNK
     Route: 061

REACTIONS (21)
  - Brain fog [Unknown]
  - Cognitive disorder [Unknown]
  - Muscle atrophy [Unknown]
  - Insomnia [Unknown]
  - Anxiety [Unknown]
  - Temperature intolerance [Unknown]
  - Asteatosis [Unknown]
  - Alopecia [Unknown]
  - Hormone level abnormal [Unknown]
  - Fatigue [Unknown]
  - Vitreous floaters [Unknown]
  - Vision blurred [Unknown]
  - Tinnitus [Unknown]
  - Skin texture abnormal [Unknown]
  - Migraine [Unknown]
  - Neurological symptom [Unknown]
  - Drug withdrawal syndrome [Unknown]
  - Sexual dysfunction [Unknown]
  - Testicular pain [Unknown]
  - Prescription drug used without a prescription [Unknown]
  - Product use issue [Unknown]
